FAERS Safety Report 8500389-8 (Version None)
Quarter: 2012Q3

REPORT INFORMATION
  Report Type: 
  Country: None (occurrence: None)
  Receive Date: 20120705
  Receipt Date: 20120705
  Transmission Date: 20120928
  Serious: Yes (Other)
  Sender: FDA-Public Use
  Company Number: None

PATIENT
  Sex: Female
  Weight: 106.1417 kg

DRUGS (1)
  1. TYSABRI [Suspect]
     Indication: MULTIPLE SCLEROSIS
     Dosage: 300 MG Q4 WEEKS IV DRIP
     Route: 041
     Dates: start: 20110324, end: 20120705

REACTIONS (3)
  - IMPAIRED HEALING [None]
  - WOUND DEHISCENCE [None]
  - WOUND SECRETION [None]
